FAERS Safety Report 24891911 (Version 4)
Quarter: 2025Q3

REPORT INFORMATION
  Report Type: Report from Study
  Country: US (occurrence: US)
  Receive Date: 20250127
  Receipt Date: 20250810
  Transmission Date: 20251021
  Serious: Yes (Other)
  Sender: ALEXION PHARMACEUTICALS
  Company Number: US-ASTRAZENECA-202501USA018844US

PATIENT
  Age: 48 Year
  Sex: Female

DRUGS (1)
  1. STRENSIQ [Suspect]
     Active Substance: ASFOTASE ALFA
     Indication: Phosphorus metabolism disorder
     Dosage: 2 MILLIGRAM/KILOGRAM, TIW
     Route: 065
     Dates: start: 202409

REACTIONS (21)
  - Cushing^s syndrome [Unknown]
  - Tooth disorder [Unknown]
  - Cortisol abnormal [Unknown]
  - Hypertension [Not Recovered/Not Resolved]
  - Weight fluctuation [Unknown]
  - Fatigue [Unknown]
  - Insomnia [Unknown]
  - Glucose tolerance impaired [Unknown]
  - Dry skin [Unknown]
  - Sensitive skin [Unknown]
  - Headache [Unknown]
  - Paraesthesia [Unknown]
  - Arthralgia [Unknown]
  - Dizziness [Unknown]
  - Asthenia [Unknown]
  - Joint stiffness [Unknown]
  - Back pain [Unknown]
  - Myalgia [Unknown]
  - Stress [Unknown]
  - Hypoaesthesia [Unknown]
  - Drug ineffective [Unknown]
